FAERS Safety Report 4999672-2 (Version None)
Quarter: 2006Q2

REPORT INFORMATION
  Report Type: 
  Country: None (occurrence: None)
  Receive Date: 20060509
  Receipt Date: 20060426
  Transmission Date: 20061013
  Serious: Yes (Other)
  Sender: FDA-Public Use
  Company Number: 2006S1000056

PATIENT
  Age: 51 Year
  Sex: Female
  Weight: 97.27 kg

DRUGS (14)
  1. CUBICIN [Suspect]
     Indication: CELLULITIS STAPHYLOCOCCAL
     Dosage: 4 MG/KG
     Dates: start: 20060217, end: 20060301
  2. METOCLOPRAMIDE [Concomitant]
  3. ANZEMET [Concomitant]
  4. PROMETHAZINE [Concomitant]
  5. MORPHINE [Concomitant]
  6. PERCOCET [Concomitant]
  7. NEURONTIN [Concomitant]
  8. INSULIN [Concomitant]
  9. METRONIDAZOLE [Concomitant]
  10. COZAAR [Concomitant]
  11. NEURONTIN [Concomitant]
  12. MICRO-K [Concomitant]
  13. FIORICET [Concomitant]
  14. ESGIC [Concomitant]

REACTIONS (1)
  - STAPHYLOCOCCAL BACTERAEMIA [None]
